FAERS Safety Report 9698082 (Version 2)
Quarter: 2014Q1

REPORT INFORMATION
  Report Type: Spontaneous
  Country: US (occurrence: US)
  Receive Date: 20131120
  Receipt Date: 20140113
  Transmission Date: 20141002
  Serious: No
  Sender: FDA-Public Use
  Company Number: US-PFIZER INC-2013330507

PATIENT
  Age: 69 Year
  Sex: Female
  Weight: 95.24 kg

DRUGS (2)
  1. VENLAFAXINE HCL [Suspect]
     Indication: ANXIETY
     Dosage: 150 MG, DAILY
     Route: 048
     Dates: start: 20131031
  2. EFFEXOR-XR [Concomitant]
     Indication: ANXIETY
     Dosage: UNK
     Dates: end: 20131030

REACTIONS (5)
  - Drug ineffective [Unknown]
  - Hypertension [Unknown]
  - Malaise [Unknown]
  - Emotional disorder [Unknown]
  - Crying [Unknown]
